FAERS Safety Report 20999594 (Version 1)
Quarter: 2022Q2

REPORT INFORMATION
  Report Type: Spontaneous
  Country: FR (occurrence: FR)
  Receive Date: 20220623
  Receipt Date: 20220623
  Transmission Date: 20220720
  Serious: Yes (Hospitalization, Other)
  Sender: FDA-Public Use
  Company Number: None

PATIENT
  Age: 35 Year
  Sex: Male

DRUGS (2)
  1. LEVOFLOXACIN [Suspect]
     Active Substance: LEVOFLOXACIN
     Indication: Enterobacter pneumonia
     Dosage: 1 GRAM (500 MG EVERY 12 HOURS TO BE PASSED IN 1 HOUR, TWICE A DAY)
     Route: 041
     Dates: start: 20220422, end: 20220505
  2. THIOPENTAL SODIUM [Suspect]
     Active Substance: THIOPENTAL SODIUM
     Indication: General anaesthesia
     Dosage: 200 MILLIGRAM (200 MG/HOUR)
     Route: 041
     Dates: start: 20220502, end: 20220512

REACTIONS (3)
  - Pancreatitis necrotising [Not Recovered/Not Resolved]
  - Eosinophilia [Recovered/Resolved]
  - Tubulointerstitial nephritis [Not Recovered/Not Resolved]

NARRATIVE: CASE EVENT DATE: 20220504
